FAERS Safety Report 8111615-1 (Version None)
Quarter: 2012Q1

REPORT INFORMATION
  Report Type: 
  Country: None (occurrence: None)
  Receive Date: 20120131
  Receipt Date: 20120126
  Transmission Date: 20120608
  Serious: Yes (Other)
  Sender: FDA-Public Use
  Company Number: 2012MA001171

PATIENT
  Age: 62 Year
  Sex: Female
  Weight: 83.0083 kg

DRUGS (5)
  1. FOLIC ACID [Concomitant]
  2. TEMAZEPAM [Concomitant]
  3. LYRICA [Suspect]
     Dosage: 100 MG, BID, PO
     Route: 048
  4. HYDROXYCHLOROQUINE SULFATE [Concomitant]
  5. GABAPENTIN [Suspect]
     Indication: FIBROMYALGIA
     Dosage: 100 MG; BID; PO
     Route: 048
     Dates: start: 20100101, end: 20110101

REACTIONS (6)
  - DRUG EFFECT DECREASED [None]
  - RHEUMATOID ARTHRITIS [None]
  - FEELING ABNORMAL [None]
  - WEIGHT DECREASED [None]
  - PALPITATIONS [None]
  - DIZZINESS [None]
